FAERS Safety Report 23655661 (Version 2)
Quarter: 2024Q3

REPORT INFORMATION
  Report Type: Report from Study
  Country: US (occurrence: US)
  Receive Date: 20240321
  Receipt Date: 20240813
  Transmission Date: 20241016
  Serious: Yes (Other)
  Sender: ABBVIE
  Company Number: US-ABBVIE-5684185

PATIENT
  Age: 66 Year
  Sex: Female

DRUGS (1)
  1. SKYRIZI [Suspect]
     Active Substance: RISANKIZUMAB-RZAA
     Indication: Psoriasis
     Route: 058
     Dates: start: 20230519, end: 20240519

REACTIONS (4)
  - Shoulder arthroplasty [Recovering/Resolving]
  - Urinary tract infection [Recovered/Resolved]
  - Influenza [Recovering/Resolving]
  - Autoimmune thyroiditis [Recovered/Resolved]

NARRATIVE: CASE EVENT DATE: 20240206
